FAERS Safety Report 4360616-8 (Version None)
Quarter: 2004Q2

REPORT INFORMATION
  Report Type: 
  Country: None (occurrence: None)
  Receive Date: 20040519
  Receipt Date: 20040517
  Transmission Date: 20050107
  Serious: Yes (Hospitalization)
  Sender: FDA-Public Use
  Company Number: AU-MERCK-0405AUS00076

PATIENT
  Sex: Female

DRUGS (7)
  1. FOSAMAX [Suspect]
     Indication: OSTEOPOROSIS
     Route: 048
     Dates: start: 20010501, end: 20040301
  2. FOSAMAX [Suspect]
     Route: 048
     Dates: start: 20040301
  3. CLOPIDOGREL BISULFATE [Concomitant]
     Route: 065
  4. FOSINOPRIL SODIUM AND HYDROCHLOROTHIAZIDE [Concomitant]
     Route: 065
  5. PERHEXILINE MALEATE [Concomitant]
     Route: 065
  6. PHENYTOIN [Concomitant]
     Route: 065
  7. PREDNISOLONE [Concomitant]
     Route: 065

REACTIONS (1)
  - INTESTINAL HAEMORRHAGE [None]
